FAERS Safety Report 8716429 (Version 3)
Quarter: 2013Q4

REPORT INFORMATION
  Report Type: Spontaneous
  Country: US (occurrence: US)
  Receive Date: 20120810
  Receipt Date: 20131105
  Transmission Date: 20140711
  Serious: Yes (Hospitalization)
  Sender: FDA-Public Use
  Company Number: US-009507513-1207USA012304

PATIENT
  Sex: Female

DRUGS (7)
  1. VICTRELIS [Suspect]
  2. PEGASYS [Suspect]
  3. COPEGUS [Suspect]
     Route: 048
  4. ATENOLOL [Suspect]
     Route: 048
  5. ALLOPURINOL [Concomitant]
     Route: 048
  6. BENAZEPRIL HYDROCHLORIDE [Concomitant]
     Route: 048
  7. ESTROGENS (UNSPECIFIED) [Concomitant]
     Route: 048

REACTIONS (5)
  - Urinary tract infection [Unknown]
  - Transfusion [Unknown]
  - Pain [Unknown]
  - Anaemia [Unknown]
  - Asthenia [Unknown]
